FAERS Safety Report 10758724 (Version 1)
Quarter: 2015Q1

REPORT INFORMATION
  Report Type: Spontaneous
  Country: US (occurrence: None)
  Receive Date: 20150202
  Receipt Date: 20150202
  Transmission Date: 20150721
  Serious: Yes (Disabling)
  Sender: FDA-Public Use
  Company Number: None

PATIENT
  Age: 80 Year
  Sex: Female
  Weight: 59.88 kg

DRUGS (3)
  1. AK-FLUOR [Suspect]
     Active Substance: D+C YELLOW NO. 8
     Indication: RETINAL TEAR
     Dosage: 3/EA 2ML VIALS
     Route: 042
     Dates: start: 20141106
  2. AK-FLUOR [Suspect]
     Active Substance: D+C YELLOW NO. 8
     Indication: PAIN
     Dosage: 3/EA 2ML VIALS
     Route: 042
     Dates: start: 20141106
  3. AK-FLUOR [Suspect]
     Active Substance: D+C YELLOW NO. 8
     Indication: PHOTOPSIA
     Dosage: 3/EA 2ML VIALS
     Route: 042
     Dates: start: 20141106

REACTIONS (21)
  - Headache [None]
  - Dizziness [None]
  - Feeling abnormal [None]
  - Discomfort [None]
  - Vomiting [None]
  - Burning sensation [None]
  - Feeling hot [None]
  - Musculoskeletal pain [None]
  - Peripheral swelling [None]
  - Contrast media allergy [None]
  - Abdominal pain upper [None]
  - Stress [None]
  - Pain [None]
  - Tremor [None]
  - Injection site discolouration [None]
  - Injection site bruising [None]
  - Pain in extremity [None]
  - Crying [None]
  - Presyncope [None]
  - Neck pain [None]
  - Nausea [None]

NARRATIVE: CASE EVENT DATE: 20141106
